FAERS Safety Report 5176537-7 (Version None)
Quarter: 2006Q4

REPORT INFORMATION
  Report Type: 
  Country: None (occurrence: None)
  Receive Date: 20061215
  Receipt Date: 20061130
  Transmission Date: 20070319
  Serious: Yes (Hospitalization, Other)
  Sender: FDA-Public Use
  Company Number: GB-JNJFOC-20061200982

PATIENT
  Age: 43 Year
  Sex: Male

DRUGS (10)
  1. DOXIL [Suspect]
     Indication: BURKITT'S LYMPHOMA
     Route: 042
  2. CYCLOPHOSPHAMIDE [Suspect]
     Indication: BURKITT'S LYMPHOMA
  3. METHOTREXATE [Suspect]
     Indication: BURKITT'S LYMPHOMA
  4. VINCRISTINE [Suspect]
     Indication: BURKITT'S LYMPHOMA
  5. CYTARABINE [Suspect]
     Indication: BURKITT'S LYMPHOMA
  6. HYDROCORTISONE [Suspect]
     Indication: BURKITT'S LYMPHOMA
  7. PREDNISOLONE [Suspect]
     Indication: BURKITT'S LYMPHOMA
  8. SAQUINAVIR [Suspect]
     Indication: ACQUIRED IMMUNODEFICIENCY SYNDROME
  9. RITONAVIR [Suspect]
     Indication: ACQUIRED IMMUNODEFICIENCY SYNDROME
  10. COTRIM D.S. [Concomitant]
     Indication: PNEUMOCYSTIS JIROVECI INFECTION

REACTIONS (6)
  - BLOOD CHOLESTEROL INCREASED [None]
  - BLOOD TRIGLYCERIDES INCREASED [None]
  - MULTIPLE FRACTURES [None]
  - OSTEONECROSIS [None]
  - OSTEOPOROSIS [None]
  - SPINAL COMPRESSION FRACTURE [None]
